FAERS Safety Report 9466002 (Version 1)
Quarter: 2013Q3

REPORT INFORMATION
  Report Type: Spontaneous
  Country: US (occurrence: US)
  Receive Date: 20130820
  Receipt Date: 20130820
  Transmission Date: 20140515
  Serious: No
  Sender: FDA-Public Use
  Company Number: US-MYLANLABS-2012S1020526

PATIENT
  Age: 71 Year
  Sex: Female
  Weight: 52.62 kg

DRUGS (5)
  1. AMLODIPINE BESYLATE TABLETS [Suspect]
     Indication: BLOOD PRESSURE INCREASED
     Route: 048
     Dates: start: 2011
  2. TEMAZEPAM CAPSULES [Suspect]
     Indication: INSOMNIA
     Route: 048
     Dates: start: 2010
  3. COREG [Concomitant]
     Indication: BLOOD PRESSURE INCREASED
  4. LIPITOR [Concomitant]
     Indication: BLOOD CHOLESTEROL INCREASED
     Dates: start: 1997
  5. WELCHOL [Concomitant]
     Indication: BLOOD CHOLESTEROL INCREASED
     Dates: start: 2000

REACTIONS (2)
  - Mouth ulceration [Not Recovered/Not Resolved]
  - Diarrhoea [Not Recovered/Not Resolved]
